FAERS Safety Report 5714485-1 (Version None)
Quarter: 2008Q2

REPORT INFORMATION
  Report Type: 
  Country: None (occurrence: None)
  Receive Date: 20080423
  Receipt Date: 20080418
  Transmission Date: 20081010
  Serious: Yes (Death, Other)
  Sender: FDA-Public Use
  Company Number: FR-JNJFOC-20080405153

PATIENT
  Age: 8 Decade
  Sex: Female

DRUGS (1)
  1. DOXORUBICIN HCL [Suspect]
     Indication: BREAST CANCER
     Dosage: 2 CYCLES ADMINISTERED
     Route: 042

REACTIONS (4)
  - DEATH [None]
  - DERMATITIS BULLOUS [None]
  - SKIN NECROSIS [None]
  - SKIN REACTION [None]
